FAERS Safety Report 6392096-5 (Version None)
Quarter: 2009Q4

REPORT INFORMATION
  Report Type: 
  Country: None (occurrence: None)
  Receive Date: 20091007
  Receipt Date: 20090928
  Transmission Date: 20100525
  Serious: Yes (Other)
  Sender: FDA-Public Use
  Company Number: US-MERCK-0907USA05805

PATIENT
  Age: 65 Year
  Sex: Female

DRUGS (2)
  1. FOSAMAX [Suspect]
     Indication: OSTEOPOROSIS
     Route: 048
     Dates: start: 20000501, end: 20080624
  2. DEPAKOTE [Concomitant]
     Indication: CONVULSION
     Route: 065
     Dates: start: 19890101

REACTIONS (10)
  - BLOOD CHOLESTEROL INCREASED [None]
  - BONE DISORDER [None]
  - CEREBROVASCULAR DISORDER [None]
  - FALL [None]
  - HEAD INJURY [None]
  - HYPOAESTHESIA ORAL [None]
  - ORAL INFECTION [None]
  - OSTEOMYELITIS [None]
  - OSTEONECROSIS [None]
  - TEMPOROMANDIBULAR JOINT SYNDROME [None]
